FAERS Safety Report 20812629 (Version 3)
Quarter: 2022Q2

REPORT INFORMATION
  Report Type: Spontaneous
  Country: FR (occurrence: FR)
  Receive Date: 20220511
  Receipt Date: 20220524
  Transmission Date: 20220721
  Serious: Yes (Congenital Anomaly)
  Sender: FDA-Public Use
  Company Number: FR-AFSSAPS-PV20220626

PATIENT

DRUGS (10)
  1. HALDOL [Suspect]
     Active Substance: HALOPERIDOL
     Indication: Mania
     Route: 064
     Dates: start: 20211213
  2. ZOPICLONE [Suspect]
     Active Substance: ZOPICLONE
     Indication: Mania
     Route: 064
     Dates: start: 20211213
  3. LEVOMEPROMAZINE [Suspect]
     Active Substance: LEVOMEPROMAZINE
     Indication: Mania
     Route: 064
     Dates: start: 20211213
  4. TROPATEPINE HYDROCHLORIDE [Suspect]
     Active Substance: TROPATEPINE HYDROCHLORIDE
     Indication: Mania
     Route: 064
     Dates: start: 20211213
  5. ALCOHOL [Suspect]
     Active Substance: ALCOHOL
     Indication: Product used for unknown indication
     Route: 065
  6. OLANZAPINE [Suspect]
     Active Substance: OLANZAPINE
     Indication: Mania
     Route: 064
     Dates: start: 20211213
  7. COCAINE [Suspect]
     Active Substance: COCAINE
     Indication: Product used for unknown indication
     Route: 065
  8. TRIMEPRAZINE [Suspect]
     Active Substance: TRIMEPRAZINE
     Indication: Mania
     Route: 064
     Dates: start: 20211213
  9. VALIUM [Suspect]
     Active Substance: DIAZEPAM
     Indication: Mania
     Route: 064
     Dates: start: 20211213
  10. ZUCLOPENTHIXOL HYDROCHLORIDE [Suspect]
     Active Substance: ZUCLOPENTHIXOL HYDROCHLORIDE
     Indication: Mania
     Route: 064
     Dates: start: 20211213

REACTIONS (2)
  - Abdominal wall anomaly [Not Recovered/Not Resolved]
  - Foetal exposure during pregnancy [Unknown]
